FAERS Safety Report 21177106 (Version 1)
Quarter: 2022Q3

REPORT INFORMATION
  Report Type: Other
  Country: IE (occurrence: None)
  Receive Date: 20220805
  Receipt Date: 20220805
  Transmission Date: 20221027
  Serious: Yes (Other)
  Sender: FDA-Public Use
  Company Number: IE-ROCHE-3149245

PATIENT
  Sex: Female

DRUGS (1)
  1. OCREVUS [Suspect]
     Active Substance: OCRELIZUMAB
     Indication: Product used for unknown indication
     Dosage: 300MGS X 2 VIALS
     Route: 042

REACTIONS (3)
  - Malaise [Not Recovered/Not Resolved]
  - Dementia [Not Recovered/Not Resolved]
  - COVID-19 [Not Recovered/Not Resolved]
